FAERS Safety Report 10438504 (Version 1)
Quarter: 2014Q3

REPORT INFORMATION
  Report Type: Spontaneous
  Country: US (occurrence: US)
  Receive Date: 20140908
  Receipt Date: 20140908
  Transmission Date: 20150326
  Serious: No
  Sender: FDA-Public Use
  Company Number: US-BRISTOL-MYERS SQUIBB COMPANY-20571774

PATIENT
  Age: 50 Year
  Sex: Female

DRUGS (3)
  1. DILAUDID [Concomitant]
     Active Substance: HYDROMORPHONE HYDROCHLORIDE
  2. ABILIFY [Suspect]
     Active Substance: ARIPIPRAZOLE
     Indication: BIPOLAR DISORDER
  3. VALIUM [Concomitant]
     Active Substance: DIAZEPAM

REACTIONS (2)
  - Muscle tightness [Not Recovered/Not Resolved]
  - Tardive dyskinesia [Not Recovered/Not Resolved]
